FAERS Safety Report 7546126-5 (Version None)
Quarter: 2011Q2

REPORT INFORMATION
  Report Type: 
  Country: None (occurrence: None)
  Receive Date: 20110614
  Receipt Date: 20010118
  Transmission Date: 20111010
  Serious: Yes (Hospitalization)
  Sender: FDA-Public Use
  Company Number: PHHO2001BR10769

PATIENT
  Age: 81 Year
  Sex: Female

DRUGS (2)
  1. DIOVAN [Suspect]
     Dosage: 80 MG, QD
     Route: 048
     Dates: end: 20021201
  2. LOSARTAN POTASSIUM [Concomitant]
     Indication: HYPERTENSION

REACTIONS (3)
  - EMPHYSEMA [None]
  - RESPIRATORY FAILURE [None]
  - CARDIAC FAILURE [None]
